FAERS Safety Report 10057203 (Version 2)
Quarter: 2014Q2

REPORT INFORMATION
  Report Type: Spontaneous
  Country: BR (occurrence: BR)
  Receive Date: 20140403
  Receipt Date: 20140403
  Transmission Date: 20141212
  Serious: Yes (Death)
  Sender: FDA-Public Use
  Company Number: BR-B.I. PHARMACEUTICALS,INC./RIDGEFIELD-2013-BI-35155BR

PATIENT
  Age: 78 Year
  Sex: Male
  Weight: 74 kg

DRUGS (6)
  1. ATROVENT [Suspect]
     Indication: DYSPNOEA
     Dosage: 1 MG
     Route: 055
     Dates: start: 201310, end: 201402
  2. GLIFAGE [Concomitant]
     Indication: DIABETES MELLITUS
     Dosage: 12.5 MG
     Route: 065
     Dates: start: 2008
  3. SINVASTATIN [Concomitant]
     Indication: HYPERTENSION
     Route: 065
     Dates: start: 2000
  4. CARDILOL [Concomitant]
     Indication: CARDIAC DISORDER
     Route: 065
     Dates: start: 2000
  5. NOT REPORT DRUG FOR HEART [Concomitant]
     Indication: CARDIAC DISORDER
     Route: 065
     Dates: start: 2000
  6. MEDICATION TO TREATMENT OF CANCER [Concomitant]
     Indication: NEOPLASM MALIGNANT
     Route: 065
     Dates: start: 2007, end: 201402

REACTIONS (2)
  - Neoplasm malignant [Fatal]
  - Rash [Not Recovered/Not Resolved]
